FAERS Safety Report 6207851-1 (Version None)
Quarter: 2009Q2

REPORT INFORMATION
  Report Type: 
  Country: None (occurrence: None)
  Receive Date: 20090528
  Receipt Date: 20090518
  Transmission Date: 20091009
  Serious: Yes (Hospitalization)
  Sender: FDA-Public Use
  Company Number: FR-SANOFI-SYNTHELABO-A02200901298

PATIENT
  Age: 62 Year
  Sex: Female

DRUGS (8)
  1. XYLOCAINE [Concomitant]
     Dosage: UNK
     Route: 065
  2. NEXIUM [Concomitant]
     Dosage: UNK
     Route: 048
  3. MORPHINE [Concomitant]
     Dosage: UNK
     Route: 065
  4. FLUCONAZOLE [Concomitant]
     Dosage: UNK
     Route: 065
  5. ECONAZOLE NITRATE [Concomitant]
     Dosage: UNK
     Route: 065
  6. ELOXATIN [Suspect]
     Indication: COLON CANCER METASTATIC
     Route: 041
     Dates: start: 20090306, end: 20090306
  7. ALUMINUM HYDROXIDE AND MAGNESIUM TRISILICATE [Concomitant]
     Dosage: UNK
     Route: 048
  8. TOMUDEX [Suspect]
     Indication: COLON CANCER METASTATIC
     Route: 042
     Dates: start: 20090306, end: 20090306

REACTIONS (2)
  - CONVULSION [None]
  - ENCEPHALOPATHY [None]
